FAERS Safety Report 17404302 (Version 11)
Quarter: 2022Q1

REPORT INFORMATION
  Report Type: Report from Study
  Country: HK (occurrence: HK)
  Receive Date: 20200211
  Receipt Date: 20220131
  Transmission Date: 20220423
  Serious: Yes (Death, Life-Threatening, Hospitalization)
  Sender: FDA-Public Use
  Company Number: NVSC2020HK035096

PATIENT
  Age: 49 Year
  Sex: Female
  Weight: 63 kg

DRUGS (98)
  1. SABATOLIMAB [Suspect]
     Active Substance: SABATOLIMAB
     Indication: Myelodysplastic syndrome
     Dosage: CODE NOT BROKEN
     Route: 042
     Dates: start: 20191021, end: 20200120
  2. AMPHOTERICIN B [Concomitant]
     Active Substance: AMPHOTERICIN B
     Indication: Pneumonia
     Dosage: UNK
     Route: 065
     Dates: start: 20191031
  3. POSACONAZOLE [Concomitant]
     Active Substance: POSACONAZOLE
     Indication: Antifungal prophylaxis
     Dosage: UNK
     Route: 065
     Dates: start: 20191230, end: 20200202
  4. SLOW K [Concomitant]
     Active Substance: POTASSIUM CHLORIDE
     Indication: Prophylaxis
     Dosage: UNK
     Route: 065
     Dates: start: 20191230, end: 20200206
  5. FAMOTIDINE [Concomitant]
     Active Substance: FAMOTIDINE
     Indication: Prophylaxis against gastrointestinal ulcer
     Dosage: UNK
     Route: 065
     Dates: start: 20191231, end: 20200205
  6. FILGRASTIM [Concomitant]
     Active Substance: FILGRASTIM
     Indication: Neutropenia
     Dosage: UNK
     Route: 065
     Dates: start: 20200106, end: 20200106
  7. FILGRASTIM [Concomitant]
     Active Substance: FILGRASTIM
     Dosage: UNK
     Route: 065
     Dates: start: 20200108, end: 20200119
  8. FILGRASTIM [Concomitant]
     Active Substance: FILGRASTIM
     Dosage: UNK
     Route: 065
     Dates: start: 20200121, end: 20200121
  9. FILGRASTIM [Concomitant]
     Active Substance: FILGRASTIM
     Dosage: UNK
     Route: 065
     Dates: start: 20200123, end: 20200123
  10. FILGRASTIM [Concomitant]
     Active Substance: FILGRASTIM
     Dosage: UNK
     Route: 065
     Dates: start: 20200126, end: 20200126
  11. FILGRASTIM [Concomitant]
     Active Substance: FILGRASTIM
     Dosage: UNK
     Route: 065
     Dates: start: 20200131, end: 20200131
  12. TRANSAMIN [Concomitant]
     Active Substance: TRANEXAMIC ACID
     Indication: Prophylaxis
     Dosage: UNK
     Route: 065
     Dates: start: 20200102, end: 20200120
  13. TRANSAMIN [Concomitant]
     Active Substance: TRANEXAMIC ACID
     Dosage: UNK
     Route: 065
     Dates: start: 20200120, end: 20200126
  14. TRANSAMIN [Concomitant]
     Active Substance: TRANEXAMIC ACID
     Dosage: UNK
     Route: 065
     Dates: start: 20200126, end: 20200129
  15. TRANSAMIN [Concomitant]
     Active Substance: TRANEXAMIC ACID
     Dosage: UNK
     Route: 065
     Dates: start: 20200129, end: 20200131
  16. TRANSAMIN [Concomitant]
     Active Substance: TRANEXAMIC ACID
     Dosage: UNK
     Route: 065
     Dates: start: 20200131, end: 20200131
  17. TRANSAMIN [Concomitant]
     Active Substance: TRANEXAMIC ACID
     Dosage: UNK
     Route: 065
     Dates: start: 20200201, end: 20200201
  18. TRANSAMIN [Concomitant]
     Active Substance: TRANEXAMIC ACID
     Dosage: UNK
     Route: 065
     Dates: start: 20200201, end: 20200205
  19. TRANSAMIN [Concomitant]
     Active Substance: TRANEXAMIC ACID
     Dosage: UNK
     Route: 065
     Dates: start: 20200205
  20. CHLORPHENIRAMINE MALEATE [Concomitant]
     Active Substance: CHLORPHENIRAMINE MALEATE
     Indication: Premedication
     Dosage: UNK
     Route: 065
     Dates: start: 20200108, end: 20200108
  21. CHLORPHENIRAMINE MALEATE [Concomitant]
     Active Substance: CHLORPHENIRAMINE MALEATE
     Dosage: UNK
     Route: 065
     Dates: start: 20200110, end: 20200112
  22. CHLORPHENIRAMINE MALEATE [Concomitant]
     Active Substance: CHLORPHENIRAMINE MALEATE
     Dosage: UNK
     Route: 065
     Dates: start: 20200114, end: 20200116
  23. CHLORPHENIRAMINE MALEATE [Concomitant]
     Active Substance: CHLORPHENIRAMINE MALEATE
     Dosage: UNK
     Route: 065
     Dates: start: 20200118, end: 20200126
  24. CHLORPHENIRAMINE MALEATE [Concomitant]
     Active Substance: CHLORPHENIRAMINE MALEATE
     Dosage: UNK
     Route: 065
     Dates: start: 20200128, end: 20200129
  25. CHLORPHENIRAMINE MALEATE [Concomitant]
     Active Substance: CHLORPHENIRAMINE MALEATE
     Dosage: UNK
     Route: 065
     Dates: start: 20200201, end: 20200203
  26. CHLORPHENIRAMINE MALEATE [Concomitant]
     Active Substance: CHLORPHENIRAMINE MALEATE
     Dosage: UNK
     Route: 065
     Dates: start: 20200205, end: 20200205
  27. CHLORPHENIRAMINE MALEATE [Concomitant]
     Active Substance: CHLORPHENIRAMINE MALEATE
     Dosage: UNK
     Route: 065
     Dates: start: 20200207
  28. MEROPENEM [Concomitant]
     Active Substance: MEROPENEM
     Indication: Febrile neutropenia
     Dosage: UNK
     Route: 065
     Dates: start: 20200122, end: 20200128
  29. LASIX [Concomitant]
     Active Substance: FUROSEMIDE
     Indication: Prophylaxis
     Dosage: UNK
     Route: 065
     Dates: start: 20200107, end: 20200107
  30. LASIX [Concomitant]
     Active Substance: FUROSEMIDE
     Indication: Transfusion
     Dosage: UNK
     Route: 065
     Dates: start: 20200111, end: 20200111
  31. LASIX [Concomitant]
     Active Substance: FUROSEMIDE
     Dosage: UNK
     Route: 065
     Dates: start: 20200114, end: 20200114
  32. LASIX [Concomitant]
     Active Substance: FUROSEMIDE
     Dosage: UNK
     Route: 065
     Dates: start: 20200119, end: 20200119
  33. LASIX [Concomitant]
     Active Substance: FUROSEMIDE
     Dosage: UNK
     Route: 065
     Dates: start: 20200123, end: 20200123
  34. LASIX [Concomitant]
     Active Substance: FUROSEMIDE
     Dosage: UNK
     Route: 065
     Dates: start: 20200130, end: 20200130
  35. LASIX [Concomitant]
     Active Substance: FUROSEMIDE
     Dosage: UNK
     Route: 065
     Dates: start: 20200201, end: 20200201
  36. LASIX [Concomitant]
     Active Substance: FUROSEMIDE
     Dosage: UNK
     Route: 065
     Dates: start: 20200202, end: 20200206
  37. LASIX [Concomitant]
     Active Substance: FUROSEMIDE
     Dosage: UNK
     Route: 065
     Dates: start: 20200206, end: 20200206
  38. LASIX [Concomitant]
     Active Substance: FUROSEMIDE
     Dosage: UNK
     Route: 065
     Dates: start: 20200206, end: 20200207
  39. LASIX [Concomitant]
     Active Substance: FUROSEMIDE
     Dosage: UNK
     Route: 065
     Dates: start: 20200207, end: 20200208
  40. LASIX [Concomitant]
     Active Substance: FUROSEMIDE
     Dosage: UNK
     Route: 065
     Dates: start: 20200208, end: 20200209
  41. LASIX [Concomitant]
     Active Substance: FUROSEMIDE
     Dosage: UNK
     Route: 065
     Dates: start: 20200215
  42. TIMENTIN [Concomitant]
     Active Substance: CLAVULANATE POTASSIUM\TICARCILLIN DISODIUM
     Indication: Prophylaxis
     Dosage: UNK
     Route: 065
     Dates: start: 20200128, end: 20200130
  43. CEFTAZIDIME [Concomitant]
     Active Substance: CEFTAZIDIME
     Indication: Antifungal prophylaxis
     Dosage: UNK
     Route: 065
     Dates: start: 20200109, end: 20200112
  44. CEFTAZIDIME [Concomitant]
     Active Substance: CEFTAZIDIME
     Indication: Prophylaxis
     Dosage: UNK
     Route: 065
     Dates: start: 20200130, end: 20200203
  45. DOXYCYCLINE HYCLATE [Concomitant]
     Active Substance: DOXYCYCLINE HYCLATE
     Indication: Prophylaxis
     Dosage: UNK
     Route: 065
     Dates: start: 20200112, end: 20200112
  46. DOXYCYCLINE HYCLATE [Concomitant]
     Active Substance: DOXYCYCLINE HYCLATE
     Dosage: UNK
     Route: 065
     Dates: start: 20200112, end: 20200119
  47. DOXYCYCLINE HYCLATE [Concomitant]
     Active Substance: DOXYCYCLINE HYCLATE
     Dosage: UNK
     Route: 065
     Dates: start: 20200203, end: 20200203
  48. DOXYCYCLINE HYCLATE [Concomitant]
     Active Substance: DOXYCYCLINE HYCLATE
     Dosage: UNK
     Route: 065
     Dates: start: 20200204, end: 20200205
  49. PIPERACILLIN SODIUM\TAZOBACTAM SODIUM [Concomitant]
     Active Substance: PIPERACILLIN SODIUM\TAZOBACTAM SODIUM
     Indication: Prophylaxis
     Dosage: UNK
     Route: 065
     Dates: start: 20200112, end: 20200122
  50. MAGNESIUM TRISILICATE [Concomitant]
     Active Substance: MAGNESIUM TRISILICATE
     Indication: Prophylaxis
     Dosage: UNK
     Route: 065
     Dates: start: 20200120, end: 20200126
  51. MAGNESIUM TRISILICATE [Concomitant]
     Active Substance: MAGNESIUM TRISILICATE
     Dosage: UNK
     Route: 065
     Dates: start: 20200129, end: 20200201
  52. FLAGYL [Concomitant]
     Active Substance: METRONIDAZOLE\METRONIDAZOLE HYDROCHLORIDE
     Indication: Diarrhoea
     Dosage: UNK
     Route: 065
     Dates: start: 20200120, end: 20200125
  53. VANCOMYCIN HYDROCHLORIDE [Concomitant]
     Active Substance: VANCOMYCIN HYDROCHLORIDE
     Indication: Prophylaxis
     Dosage: UNK
     Route: 065
     Dates: start: 20200129, end: 20200205
  54. AMBISOME [Concomitant]
     Active Substance: AMPHOTERICIN B
     Indication: Antifungal prophylaxis
     Dosage: UNK
     Route: 065
     Dates: start: 20200202, end: 20200206
  55. POTASSIUM CHLORIDE [Concomitant]
     Active Substance: POTASSIUM CHLORIDE
     Indication: Hypokalaemia
     Dosage: UNK
     Route: 065
     Dates: start: 20200203, end: 20200203
  56. POTASSIUM CHLORIDE [Concomitant]
     Active Substance: POTASSIUM CHLORIDE
     Dosage: UNK
     Route: 065
     Dates: start: 20200205, end: 20200205
  57. POTASSIUM CHLORIDE [Concomitant]
     Active Substance: POTASSIUM CHLORIDE
     Dosage: 20 MMOL IN HALF HALF SOLUTION
     Route: 065
     Dates: start: 20200207, end: 20200207
  58. POTASSIUM CHLORIDE [Concomitant]
     Active Substance: POTASSIUM CHLORIDE
     Dosage: 40 MMOL IN HALF HALF SOLUTION
     Route: 065
     Dates: start: 20200208, end: 20200208
  59. POTASSIUM CHLORIDE [Concomitant]
     Active Substance: POTASSIUM CHLORIDE
     Dosage: 40 MMOL/L IN D5 SOLUTION
     Route: 065
     Dates: start: 20200209, end: 20200209
  60. POTASSIUM CHLORIDE [Concomitant]
     Active Substance: POTASSIUM CHLORIDE
     Dosage: 20 MMOL/L IN D5 SOLUTION
     Route: 065
     Dates: start: 20200210, end: 20200210
  61. POTASSIUM CHLORIDE [Concomitant]
     Active Substance: POTASSIUM CHLORIDE
     Dosage: 10 MMOL/L IN D5 SOLUTION
     Route: 065
     Dates: start: 20200211, end: 20200211
  62. POTASSIUM CHLORIDE [Concomitant]
     Active Substance: POTASSIUM CHLORIDE
     Dosage: 10 MMOL/L IN D5 SOLUTION
     Route: 065
     Dates: start: 20200212, end: 20200212
  63. HYDROCORTISONE [Concomitant]
     Active Substance: HYDROCORTISONE
     Indication: Agitation
     Dosage: UNK
     Route: 065
     Dates: start: 20200203, end: 20200203
  64. HYDROCORTISONE [Concomitant]
     Active Substance: HYDROCORTISONE
     Dosage: UNK
     Route: 065
     Dates: start: 20200203, end: 20200204
  65. HYDROCORTISONE [Concomitant]
     Active Substance: HYDROCORTISONE
     Dosage: UNK
     Route: 065
     Dates: start: 20200204, end: 20200206
  66. DEXTROSE [Concomitant]
     Active Substance: DEXTROSE
     Indication: Supplementation therapy
     Dosage: UNK
     Route: 065
     Dates: start: 20200209, end: 20200209
  67. DEXTROSE [Concomitant]
     Active Substance: DEXTROSE
     Dosage: UNK
     Route: 065
     Dates: start: 20200211, end: 20200212
  68. CEFOPERAZONE SODIUM\SULBACTAM SODIUM [Concomitant]
     Active Substance: CEFOPERAZONE SODIUM\SULBACTAM SODIUM
     Indication: Prophylaxis
     Dosage: UNK
     Route: 065
     Dates: start: 20200203, end: 20200206
  69. VITAMIN K [Concomitant]
     Active Substance: PHYTONADIONE
     Indication: Coagulation test abnormal
     Dosage: UNK
     Route: 065
     Dates: start: 20200203
  70. TRAMADOL HCL [Concomitant]
     Active Substance: TRAMADOL HYDROCHLORIDE
     Indication: Back pain
     Dosage: UNK
     Route: 065
     Dates: start: 20200204, end: 20200205
  71. TRAMADOL HCL [Concomitant]
     Active Substance: TRAMADOL HYDROCHLORIDE
     Dosage: UNK
     Route: 065
     Dates: start: 20200210, end: 20200210
  72. MORPHINE SULFATE [Concomitant]
     Active Substance: MORPHINE SULFATE
     Indication: Back pain
     Dosage: UNK
     Route: 065
     Dates: start: 20200205, end: 20200206
  73. MORPHINE SULFATE [Concomitant]
     Active Substance: MORPHINE SULFATE
     Dosage: UNK
     Route: 065
     Dates: start: 20200206, end: 20200206
  74. MORPHINE SULFATE [Concomitant]
     Active Substance: MORPHINE SULFATE
     Dosage: UNK
     Route: 065
     Dates: start: 20200211, end: 20200211
  75. ALBUMIN HUMAN [Concomitant]
     Active Substance: ALBUMIN HUMAN
     Indication: Prophylaxis
     Dosage: 2G/ML
     Route: 065
     Dates: start: 20200206, end: 20200206
  76. FEBUXOSTAT [Concomitant]
     Active Substance: FEBUXOSTAT
     Indication: Prophylaxis
     Dosage: UNK
     Route: 065
     Dates: start: 20200206, end: 20200209
  77. PANTOPRAZOLE SODIUM [Concomitant]
     Active Substance: PANTOPRAZOLE SODIUM
     Indication: Prophylaxis
     Dosage: UNK
     Route: 065
     Dates: start: 20200206, end: 20200214
  78. MAXIPIME [Concomitant]
     Active Substance: CEFEPIME HYDROCHLORIDE
     Indication: Antibiotic therapy
     Dosage: UNK
     Route: 065
     Dates: start: 20200206, end: 20200209
  79. MAXIPIME [Concomitant]
     Active Substance: CEFEPIME HYDROCHLORIDE
     Dosage: UNK
     Route: 065
     Dates: start: 20200210
  80. CHLORHEXIDINE GLUCONATE [Concomitant]
     Active Substance: CHLORHEXIDINE GLUCONATE
     Indication: Prophylaxis
     Dosage: UNK
     Route: 065
     Dates: start: 20200211, end: 20200213
  81. VALIUM [Concomitant]
     Active Substance: DIAZEPAM
     Indication: Agitation
     Dosage: UNK
     Route: 065
     Dates: start: 20200209, end: 20200209
  82. VALIUM [Concomitant]
     Active Substance: DIAZEPAM
     Dosage: UNK
     Route: 065
     Dates: start: 20200210, end: 20200211
  83. LACTULOSE [Concomitant]
     Active Substance: LACTULOSE
     Indication: Constipation
     Dosage: UNK
     Route: 065
     Dates: start: 20200211, end: 20200211
  84. ACTRAPID [Concomitant]
     Active Substance: INSULIN HUMAN
     Indication: Hyperglycaemia
     Dosage: UNK
     Route: 065
     Dates: start: 20200213, end: 20200213
  85. ACTRAPID [Concomitant]
     Active Substance: INSULIN HUMAN
     Dosage: UNK
     Route: 065
     Dates: start: 20200213, end: 20200214
  86. ACTRAPID [Concomitant]
     Active Substance: INSULIN HUMAN
     Dosage: UNK
     Route: 065
     Dates: start: 20200214, end: 20200214
  87. ACETAMINOPHEN [Concomitant]
     Active Substance: ACETAMINOPHEN
     Indication: Pyrexia
     Dosage: UNK
     Route: 065
     Dates: start: 20200205, end: 20200206
  88. ACETAMINOPHEN [Concomitant]
     Active Substance: ACETAMINOPHEN
     Dosage: UNK
     Route: 065
     Dates: start: 20200206, end: 20200206
  89. ACETAMINOPHEN [Concomitant]
     Active Substance: ACETAMINOPHEN
     Dosage: UNK
     Route: 065
     Dates: start: 20200215
  90. NEXIUM [Concomitant]
     Active Substance: ESOMEPRAZOLE MAGNESIUM
     Indication: Prophylaxis against gastrointestinal ulcer
     Dosage: UNK
     Route: 065
     Dates: start: 20200215
  91. MAGNESIUM SULFATE [Concomitant]
     Active Substance: MAGNESIUM SULFATE
     Indication: Prophylaxis
     Dosage: UNK
     Route: 065
     Dates: start: 20200113, end: 20200113
  92. MAGNESIUM SULFATE [Concomitant]
     Active Substance: MAGNESIUM SULFATE
     Dosage: UNK
     Route: 065
     Dates: start: 20200125, end: 20200125
  93. MAGNESIUM SULFATE [Concomitant]
     Active Substance: MAGNESIUM SULFATE
     Dosage: UNK
     Route: 065
     Dates: start: 20200203, end: 20200203
  94. ANIDULAFUNGIN [Concomitant]
     Active Substance: ANIDULAFUNGIN
     Indication: Antifungal prophylaxis
     Dosage: UNK
     Route: 065
     Dates: start: 20200207
  95. RASBURICASE [Concomitant]
     Active Substance: RASBURICASE
     Indication: Prophylaxis
     Dosage: UNK
     Route: 065
     Dates: start: 20200207, end: 20200208
  96. RASBURICASE [Concomitant]
     Active Substance: RASBURICASE
     Indication: Hyperuricaemia
     Dosage: UNK
     Route: 065
     Dates: start: 20200215
  97. ETOPOSIDE [Concomitant]
     Active Substance: ETOPOSIDE
     Indication: Leukocytosis
     Dosage: UNK
     Route: 065
     Dates: start: 20200207, end: 20200207
  98. NORVASC [Concomitant]
     Active Substance: AMLODIPINE BESYLATE
     Indication: Hypertension
     Dosage: UNK
     Route: 065
     Dates: start: 20200208, end: 20200208

REACTIONS (2)
  - Pneumonitis [Fatal]
  - Pleural effusion [Fatal]

NARRATIVE: CASE EVENT DATE: 20200127
